FAERS Safety Report 9621372 (Version 1)
Quarter: 2013Q4

REPORT INFORMATION
  Report Type: Spontaneous
  Country: US (occurrence: US)
  Receive Date: 20131015
  Receipt Date: 20131015
  Transmission Date: 20140711
  Serious: No
  Sender: FDA-Public Use
  Company Number: US-PFIZER INC-2013292752

PATIENT
  Sex: Male

DRUGS (6)
  1. MEDROL [Suspect]
     Indication: RASH
     Dosage: 4 MG, UNK
  2. MEDROL [Suspect]
     Indication: ECZEMA
  3. TRIAMCINOLONE [Suspect]
     Indication: RASH
     Dosage: 0.5%
  4. TRIAMCINOLONE [Suspect]
     Indication: ECZEMA
  5. HALOBETASOL PROPIONATE [Suspect]
     Indication: RASH
     Dosage: UNK
  6. HALOBETASOL PROPIONATE [Suspect]
     Indication: ECZEMA

REACTIONS (1)
  - Drug ineffective [Unknown]
